FAERS Safety Report 5026131-3 (Version None)
Quarter: 2006Q2

REPORT INFORMATION
  Report Type: 
  Country: None (occurrence: None)
  Receive Date: 20060614
  Receipt Date: 20060605
  Transmission Date: 20061013
  Serious: Yes (Hospitalization)
  Sender: FDA-Public Use
  Company Number: IT-BOEHRINGER INGELHEIM PHARMACEUTICALS, INC.-2006-BP-06557YA

PATIENT
  Sex: Male

DRUGS (1)
  1. OMNIC CAPSULES [Suspect]
     Indication: BENIGN PROSTATIC HYPERPLASIA
     Route: 048
     Dates: start: 20050501, end: 20060512

REACTIONS (2)
  - CATARACT OPERATION [None]
  - IRIS DISORDER [None]
